FAERS Safety Report 5574808-3 (Version None)
Quarter: 2007Q4

REPORT INFORMATION
  Report Type: 
  Country: None (occurrence: None)
  Receive Date: 20071226
  Receipt Date: 20071226
  Transmission Date: 20080405
  Serious: Yes (Hospitalization)
  Sender: FDA-Public Use
  Company Number: None

PATIENT
  Age: 62 Year
  Sex: Male

DRUGS (2)
  1. LEVALBUTEROL HCL [Suspect]
     Indication: UPPER RESPIRATORY TRACT INFECTION
     Dosage: 2PUFF(S) ONCE INHALE
     Route: 055
     Dates: start: 20071004, end: 20071004
  2. XOPENEX [Suspect]
     Dosage: 0.021% ONCE INHALE
     Route: 055

REACTIONS (2)
  - HYPOTENSION [None]
  - TACHYCARDIA [None]
